FAERS Safety Report 13561753 (Version 5)
Quarter: 2017Q3

REPORT INFORMATION
  Report Type: Report from Study
  Country: None (occurrence: BE)
  Receive Date: 20170518
  Receipt Date: 20170831
  Transmission Date: 20171127
  Serious: Yes (Hospitalization, Other)
  Sender: FDA-Public Use
  Company Number: BE-ABBVIE-16P-013-1693606-00

PATIENT
  Age: 71 Year
  Sex: Female
  Weight: 73 kg

DRUGS (7)
  1. DUODOPA [Suspect]
     Active Substance: CARBIDOPA\LEVODOPA
     Dosage: AM DOSE=13ML; CD=4ML/H DURING 16HRS AND ED=2ML
     Route: 050
     Dates: start: 20160825, end: 20160926
  2. DUODOPA [Suspect]
     Active Substance: CARBIDOPA\LEVODOPA
     Dosage: MD= 12 ML; CD= 4.3 ML/H DURING 16 HRS; EDA= 2 ML
     Route: 050
     Dates: start: 20170828
  3. DUODOPA [Suspect]
     Active Substance: CARBIDOPA\LEVODOPA
     Dosage: AM= 12 ML; CD= 3.8 ML/H X16 HRS; ED= 1.5 ML
     Route: 050
     Dates: start: 20160726, end: 20160825
  4. DUODOPA [Suspect]
     Active Substance: CARBIDOPA\LEVODOPA
     Indication: PARKINSON^S DISEASE
     Dosage: AM= 11 ML; CD= 3.5 ML/H DURING 16 HRS; ED= 1.5 ML
     Route: 050
     Dates: start: 20160725, end: 20160727
  5. DUODOPA [Suspect]
     Active Substance: CARBIDOPA\LEVODOPA
     Dosage: AM DOSE=12ML; CD=4.3ML/H DURING 16HRS AND ED=2ML
     Route: 050
     Dates: start: 20160926, end: 20170727
  6. DUODOPA [Suspect]
     Active Substance: CARBIDOPA\LEVODOPA
     Dosage: AM= 12 ML; CD= 3.5 ML/H DURING 16 HRS; ED= 1.5 ML
     Route: 050
     Dates: start: 20160727, end: 20160818
  7. DUODOPA [Suspect]
     Active Substance: CARBIDOPA\LEVODOPA
     Dosage: MD= 12 ML; CD= 4.4 ML/H DURING 16 HRS; EDA= 2 ML
     Route: 050
     Dates: start: 20170727, end: 20170828

REACTIONS (22)
  - Muscle rigidity [Unknown]
  - On and off phenomenon [Unknown]
  - Dyspepsia [Not Recovered/Not Resolved]
  - Abdominal pain upper [Unknown]
  - Somnolence [Unknown]
  - Catheter site haematoma [Unknown]
  - Abdominal pain upper [Recovered/Resolved]
  - Freezing phenomenon [Not Recovered/Not Resolved]
  - Adenocarcinoma pancreas [Unknown]
  - Cholelithiasis [Not Recovered/Not Resolved]
  - Stoma site discharge [Not Recovered/Not Resolved]
  - Thyroid mass [Unknown]
  - Neck pain [Unknown]
  - Stoma site hypergranulation [Not Recovered/Not Resolved]
  - Hallucination [Unknown]
  - Gait disturbance [Unknown]
  - Insomnia [Not Recovered/Not Resolved]
  - Balance disorder [Unknown]
  - Hyperhidrosis [Not Recovered/Not Resolved]
  - Dysgeusia [Unknown]
  - Dystonia [Unknown]
  - Stoma site pain [Unknown]

NARRATIVE: CASE EVENT DATE: 20160818
